FAERS Safety Report 21185632 (Version 1)
Quarter: 2022Q3

REPORT INFORMATION
  Report Type: Spontaneous
  Country: US (occurrence: US)
  Receive Date: 20220808
  Receipt Date: 20220808
  Transmission Date: 20221026
  Serious: No
  Sender: FDA-Public Use
  Company Number: US-SA-SAC20220802001430

PATIENT
  Age: 11 Year
  Sex: Male
  Weight: 51 kg

DRUGS (2)
  1. DUPIXENT [Suspect]
     Active Substance: DUPILUMAB
     Indication: Dermatitis atopic
     Dosage: 200 MG QOW
     Route: 058
     Dates: start: 202104
  2. DUPIXENT [Suspect]
     Active Substance: DUPILUMAB
     Dosage: 300 MG QOW
     Route: 058

REACTIONS (6)
  - Infected skin ulcer [Unknown]
  - Scratch [Unknown]
  - Rash [Unknown]
  - Lack of injection site rotation [Unknown]
  - Incorrect dose administered [Unknown]
  - Device use issue [Unknown]
